FAERS Safety Report 8815129 (Version 1)
Quarter: 2012Q4

REPORT INFORMATION
  Report Type: Report from Study
  Country: CA (occurrence: CA)
  Receive Date: 20120928
  Receipt Date: 20120928
  Transmission Date: 20130627
  Serious: Yes (Other)
  Sender: FDA-Public Use
  Company Number: CA-JNJFOC-20120908694

PATIENT
  Age: 26 Year
  Sex: Male
  Weight: 60 kg

DRUGS (5)
  1. REMICADE [Suspect]
     Indication: CROHN^S DISEASE
     Route: 042
     Dates: start: 200811
  2. METHOTREXATE [Concomitant]
     Route: 048
  3. FOLIC ACID [Concomitant]
     Route: 048
  4. METHOCLOPRAMIDE [Concomitant]
     Route: 065
  5. STOOL SOFTENER [Concomitant]
     Route: 065

REACTIONS (2)
  - Peritonsillar abscess [Recovered/Resolved]
  - Intestinal resection [Not Recovered/Not Resolved]
